FAERS Safety Report 11440991 (Version 1)
Quarter: 2015Q3

REPORT INFORMATION
  Report Type: Spontaneous
  Country: US (occurrence: US)
  Receive Date: 20150821
  Receipt Date: 20150821
  Transmission Date: 20151125
  Serious: No
  Sender: FDA-Public Use
  Company Number: US-ELI_LILLY_AND_COMPANY-US200712003325

PATIENT
  Sex: Female

DRUGS (7)
  1. REMERON [Concomitant]
     Active Substance: MIRTAZAPINE
  2. KLONOPIN [Concomitant]
     Active Substance: CLONAZEPAM
  3. ZOLOFT [Concomitant]
     Active Substance: SERTRALINE HYDROCHLORIDE
  4. COGENTIN [Concomitant]
     Active Substance: BENZTROPINE MESYLATE
  5. CYMBALTA [Suspect]
     Active Substance: DULOXETINE HYDROCHLORIDE
     Indication: HEADACHE
     Dosage: UNK, UNK
     Dates: start: 2007, end: 20071211
  6. ATIVAN [Concomitant]
     Active Substance: LORAZEPAM
  7. ABILIFY [Concomitant]
     Active Substance: ARIPIPRAZOLE

REACTIONS (1)
  - Dyspnoea [Not Recovered/Not Resolved]

NARRATIVE: CASE EVENT DATE: 2007
